FAERS Safety Report 23715940 (Version 2)
Quarter: 2024Q2

REPORT INFORMATION
  Report Type: Other
  Country: JP (occurrence: JP)
  Receive Date: 20240408
  Receipt Date: 20240417
  Transmission Date: 20240716
  Serious: Yes (Hospitalization, Other)
  Sender: FDA-Public Use
  Company Number: JP-ALVOGEN-2024093334

PATIENT
  Age: 83 Year
  Sex: Female

DRUGS (1)
  1. TERIPARATIDE [Suspect]
     Active Substance: TERIPARATIDE
     Indication: Thoracic vertebral fracture
     Route: 058

REACTIONS (3)
  - Acute kidney injury [Recovering/Resolving]
  - Hypercalcaemia [Recovering/Resolving]
  - Off label use [Unknown]
